FAERS Safety Report 4906387-5 (Version None)
Quarter: 2006Q1

REPORT INFORMATION
  Report Type: 
  Country: None (occurrence: None)
  Receive Date: 20060206
  Receipt Date: 20060126
  Transmission Date: 20060701
  Serious: Yes (Congenital Anomaly)
  Sender: FDA-Public Use
  Company Number: UKP06000022

PATIENT
  Sex: Male

DRUGS (3)
  1. ASACOL [Suspect]
     Dosage: TRANSPLACENTAL
     Route: 064
  2. PENTASA [Suspect]
     Dosage: TRANSPLACENTAL
     Route: 064
  3. TRIOFAN(XYLOMETAZOLINE HYDROCHLORIDE, CARBOCISTEINE) [Suspect]
     Dosage: TRANSPLACENTAL
     Route: 064

REACTIONS (6)
  - DRUG EXPOSURE DURING PREGNANCY [None]
  - FOETAL DISORDER [None]
  - PERICARDIAL EFFUSION [None]
  - RENAL DISORDER [None]
  - TACHYCARDIA FOETAL [None]
  - URINARY TRACT MALFORMATION [None]
